FAERS Safety Report 8371869-3 (Version None)
Quarter: 2012Q2

REPORT INFORMATION
  Report Type: 
  Country: None (occurrence: None)
  Receive Date: 20120518
  Receipt Date: 20120503
  Transmission Date: 20120825
  Serious: Yes (Other)
  Sender: FDA-Public Use
  Company Number: US-ROCHE-GNE324255

PATIENT
  Sex: Female

DRUGS (3)
  1. RANIBIZUMAB [Suspect]
     Indication: AGE-RELATED MACULAR DEGENERATION
     Dosage: 0.5 UNK, UNK
     Route: 050
     Dates: start: 20080601
  2. VITAMIN TAB [Concomitant]
  3. LIPITOR [Concomitant]
     Dosage: FOR CARDIOVASCULAR HEALTH

REACTIONS (11)
  - PAIN [None]
  - PHOTOPHOBIA [None]
  - OCULAR HYPERAEMIA [None]
  - EYE SWELLING [None]
  - LACRIMATION INCREASED [None]
  - EYE INJURY [None]
  - RETINAL DEGENERATION [None]
  - EYE DISCHARGE [None]
  - CONJUNCTIVITIS [None]
  - BLINDNESS TRANSIENT [None]
  - INJECTION SITE PAIN [None]
